FAERS Safety Report 6540375-0 (Version None)
Quarter: 2010Q1

REPORT INFORMATION
  Report Type: 
  Country: None (occurrence: None)
  Receive Date: 20100115
  Receipt Date: 20100107
  Transmission Date: 20100710
  Serious: Yes (Death, Hospitalization)
  Sender: FDA-Public Use
  Company Number: JP-MERCK-1001USA00929

PATIENT
  Age: 61 Year
  Sex: Male

DRUGS (2)
  1. PRIMAXIN [Suspect]
     Indication: PYREXIA
     Route: 065
  2. CLINDAMYCIN PHOSPHATE [Suspect]
     Indication: PYREXIA
     Route: 065

REACTIONS (2)
  - ACQUIRED HAEMOPHILIA [None]
  - OESOPHAGITIS [None]
